FAERS Safety Report 8915212 (Version 2)
Quarter: 2012Q4

REPORT INFORMATION
  Report Type: 
  Country: HU (occurrence: HU)
  Receive Date: 20121119
  Receipt Date: 20121123
  Transmission Date: 20130627
  Serious: Yes (Hospitalization, Other)
  Sender: FDA-Public Use
  Company Number: HU-JNJFOC-20121107288

PATIENT
  Sex: Male

DRUGS (6)
  1. XARELTO [Suspect]
     Indication: CEREBROVASCULAR ACCIDENT
     Route: 048
     Dates: start: 20121026, end: 20121028
  2. XARELTO [Suspect]
     Indication: ATRIAL FIBRILLATION
     Route: 048
     Dates: start: 20121026, end: 20121028
  3. ASPIRIN PROTECT [Suspect]
     Indication: THROMBOSIS PROPHYLAXIS
     Route: 048
     Dates: end: 201210
  4. SYNCUMAR [Concomitant]
     Indication: THROMBOSIS PROPHYLAXIS
     Route: 048
     Dates: end: 20121025
  5. CONCOR [Concomitant]
     Indication: ATRIAL FIBRILLATION
     Route: 048
  6. DALTEPARIN SODIUM [Concomitant]
     Indication: ATRIAL FIBRILLATION
     Route: 051
     Dates: start: 20121029

REACTIONS (3)
  - Haematuria [Recovered/Resolved]
  - Eczema [Recovering/Resolving]
  - Blood creatinine increased [Not Recovered/Not Resolved]
